FAERS Safety Report 7632429-2 (Version None)
Quarter: 2011Q3

REPORT INFORMATION
  Report Type: 
  Country: None (occurrence: None)
  Receive Date: 20110725
  Receipt Date: 20100913
  Transmission Date: 20111222
  Serious: Yes (Other)
  Sender: FDA-Public Use
  Company Number: US-BRISTOL-MYERS SQUIBB COMPANY-15270291

PATIENT
  Age: 68 Year
  Sex: Male

DRUGS (2)
  1. COUMADIN [Suspect]
     Indication: ATRIAL FIBRILLATION
     Route: 048
     Dates: start: 20100816
  2. MULTAQ [Suspect]
     Indication: ATRIAL FIBRILLATION
     Dosage: TABLET.3RD DOSE
     Route: 048
     Dates: start: 20100816

REACTIONS (1)
  - ANGIOEDEMA [None]
